FAERS Safety Report 14949560 (Version 1)
Quarter: 2018Q2

REPORT INFORMATION
  Report Type: Report from Study
  Country: GB (occurrence: GB)
  Receive Date: 20180529
  Receipt Date: 20180529
  Transmission Date: 20180711
  Serious: Yes (Hospitalization, Other)
  Sender: FDA-Public Use
  Company Number: GB-TAKEDA-2018TUS003094

PATIENT
  Age: 51 Year
  Sex: Male

DRUGS (1)
  1. VEDOLIZUMAB [Suspect]
     Active Substance: VEDOLIZUMAB
     Indication: CROHN^S DISEASE
     Dosage: UNK
     Route: 042
     Dates: start: 20171229

REACTIONS (5)
  - Bowel movement irregularity [Unknown]
  - Crohn^s disease [Unknown]
  - Rash [Not Recovered/Not Resolved]
  - Intestinal obstruction [Unknown]
  - Weight decreased [Unknown]

NARRATIVE: CASE EVENT DATE: 20180115
